FAERS Safety Report 8511148-4 (Version None)
Quarter: 2012Q3

REPORT INFORMATION
  Report Type: 
  Country: None (occurrence: None)
  Receive Date: 20120716
  Receipt Date: 20120706
  Transmission Date: 20120928
  Serious: Yes (Hospitalization)
  Sender: FDA-Public Use
  Company Number: GB-JNJFOC-20120706258

PATIENT
  Age: 50 Year
  Sex: Female

DRUGS (5)
  1. RITONAVIR [Suspect]
     Indication: HIV INFECTION
     Route: 065
  2. LAMIVUDINE [Suspect]
     Indication: HIV INFECTION
     Route: 065
  3. FLUCONAZOLE [Suspect]
     Indication: ORAL CANDIDIASIS
     Route: 048
  4. DARUNAVIR HYDRATE [Suspect]
     Indication: HIV INFECTION
     Route: 048
  5. ABACAVIR [Suspect]
     Indication: HIV INFECTION
     Route: 065

REACTIONS (1)
  - ADRENAL INSUFFICIENCY [None]
